FAERS Safety Report 16663531 (Version 1)
Quarter: 2019Q3

REPORT INFORMATION
  Report Type: Report from Study
  Country: US (occurrence: US)
  Receive Date: 20190802
  Receipt Date: 20190802
  Transmission Date: 20191004
  Serious: No
  Sender: FDA-Public Use
  Company Number: US-EXELIXIS-CABO-19020889

PATIENT
  Age: 69 Year
  Sex: Male
  Weight: 104.3 kg

DRUGS (4)
  1. OPDIVO [Concomitant]
     Active Substance: NIVOLUMAB
  2. CABOMETYX [Suspect]
     Active Substance: CABOZANTINIB S-MALATE
     Indication: NEOPLASM MALIGNANT
     Dosage: UNK
  3. YERVOY [Concomitant]
     Active Substance: IPILIMUMAB
  4. LYRICA [Concomitant]
     Active Substance: PREGABALIN

REACTIONS (3)
  - Malaise [Unknown]
  - Neuropathy peripheral [Not Recovered/Not Resolved]
  - Memory impairment [Not Recovered/Not Resolved]

NARRATIVE: CASE EVENT DATE: 20190501
